FAERS Safety Report 20197573 (Version 1)
Quarter: 2021Q4

REPORT INFORMATION
  Report Type: Spontaneous
  Country: US (occurrence: US)
  Receive Date: 20211217
  Receipt Date: 20211217
  Transmission Date: 20220303
  Serious: Yes (Hospitalization, Other)
  Sender: FDA-Public Use
  Company Number: US-drreddys-LIT/USA/21/0144775

PATIENT
  Age: 55 Year
  Sex: Male

DRUGS (36)
  1. LORAZEPAM [Suspect]
     Active Substance: LORAZEPAM
     Indication: Cancer pain
     Dosage: TOTAL 5 MG
     Route: 042
  2. LORAZEPAM [Suspect]
     Active Substance: LORAZEPAM
     Indication: Agitation
     Dosage: TOTAL 3 MG
     Route: 042
  3. LORAZEPAM [Suspect]
     Active Substance: LORAZEPAM
     Indication: Anxiety
     Route: 042
  4. MORPHINE [Suspect]
     Active Substance: MORPHINE
     Indication: Cancer pain
     Route: 048
  5. MORPHINE [Suspect]
     Active Substance: MORPHINE
     Route: 048
  6. MORPHINE [Suspect]
     Active Substance: MORPHINE
     Route: 048
  7. MORPHINE [Suspect]
     Active Substance: MORPHINE
     Route: 048
  8. MORPHINE [Suspect]
     Active Substance: MORPHINE
     Dosage: PATIENT CONTROLLED ANALGESIA (PCA) 2 MG/HOUR, FOLLOWED BY DEMAND DOSE OF 10MG EVERY 20 MINUTES
     Route: 042
  9. MORPHINE [Suspect]
     Active Substance: MORPHINE
     Dosage: DOSE DECREASED.
     Route: 048
  10. MORPHINE [Suspect]
     Active Substance: MORPHINE
     Route: 048
  11. MORPHINE [Suspect]
     Active Substance: MORPHINE
     Dosage: 10 MG PCA EVERY 10 MINUTES, EQUIVALENT WAS CONTINUED AT 790 MG.
     Route: 048
  12. MORPHINE [Suspect]
     Active Substance: MORPHINE
     Route: 048
  13. MORPHINE [Suspect]
     Active Substance: MORPHINE
     Dosage: RATE OF 10 MG/HOUR FOLLOWED BY IV MORPHINE 15 MG AS PER NEEDED.
     Route: 042
  14. MORPHINE [Suspect]
     Active Substance: MORPHINE
     Dosage: 15 MG/HOUR INFUSION FOLLOWED BY MORPHINE 20MG EVERY HOUR.
     Route: 042
  15. HYDROMORPHONE [Suspect]
     Active Substance: HYDROMORPHONE
     Indication: Cancer pain
     Dosage: FORM OF A PATIENT-CONTROLLED ANALGESIA, EVERY 10 MINUTES
     Route: 042
  16. HYDROMORPHONE [Suspect]
     Active Substance: HYDROMORPHONE
     Dosage: EVERY 4 HOURS AS PER NEEDED (5 DOSES OVER THE 24 HOURS).
     Route: 042
  17. HYDROMORPHONE [Suspect]
     Active Substance: HYDROMORPHONE
     Dosage: FORM OF A PATIENT-CONTROLLED ANALGESIA, EVERY 10 MINUTES.
     Route: 042
  18. HYDROMORPHONE [Suspect]
     Active Substance: HYDROMORPHONE
     Dosage: EVERY 4 HOURS AS PER NEEDED (5 DOSES OVER THE 24 HOURS).
     Route: 042
  19. HYDROMORPHONE [Suspect]
     Active Substance: HYDROMORPHONE
     Dosage: 0.5 MG/HOUR
     Route: 042
  20. HYDROMORPHONE [Suspect]
     Active Substance: HYDROMORPHONE
     Dosage: FOLLOWED BY DEMAND DOSE OF EVERY 10 MINUTES AND RESCUE DOSE OF 2 MG TOTAL 3 DOSES WITHIN 24 HOURS.
  21. TRAZODONE [Suspect]
     Active Substance: TRAZODONE HYDROCHLORIDE
     Indication: Cancer pain
     Dosage: EVERY NIGHT
  22. TRAZODONE [Suspect]
     Active Substance: TRAZODONE HYDROCHLORIDE
     Dosage: EVERY NIGHT
  23. TRAMADOL [Suspect]
     Active Substance: TRAMADOL
     Indication: Cancer pain
  24. DIAZEPAM [Suspect]
     Active Substance: DIAZEPAM
     Indication: Cancer pain
     Route: 048
  25. DIAZEPAM [Suspect]
     Active Substance: DIAZEPAM
     Route: 048
  26. DIAZEPAM [Suspect]
     Active Substance: DIAZEPAM
     Route: 048
  27. DIAZEPAM [Suspect]
     Active Substance: DIAZEPAM
     Route: 048
  28. DIAZEPAM [Suspect]
     Active Substance: DIAZEPAM
     Dosage: 10MG EVERY 4 HOURS, FOLLOWED BY ORAL DIAZEPAM 5MG EVERY 4 HOURS AS PER NEEDED.
     Route: 048
  29. CLONIDINE [Suspect]
     Active Substance: CLONIDINE
     Indication: Cancer pain
  30. CLONIDINE [Suspect]
     Active Substance: CLONIDINE
  31. CLONIDINE [Suspect]
     Active Substance: CLONIDINE
  32. CLONIDINE [Suspect]
     Active Substance: CLONIDINE
  33. OXYCONTIN [Suspect]
     Active Substance: OXYCODONE HYDROCHLORIDE
     Indication: Cancer pain
     Route: 048
  34. LIDOCAINE [Suspect]
     Active Substance: LIDOCAINE
     Indication: Cancer pain
     Dosage: 2 MG/KG FOLLOWED BY 1 MG/KG CONTINUOUS INFUSION.
     Route: 042
  35. BUPRENORPHINE [Concomitant]
     Active Substance: BUPRENORPHINE
     Indication: Product used for unknown indication
  36. GABAPENTIN [Concomitant]
     Active Substance: GABAPENTIN
     Indication: Pain

REACTIONS (1)
  - Drug ineffective [Unknown]
